FAERS Safety Report 5608501-5 (Version None)
Quarter: 2008Q1

REPORT INFORMATION
  Report Type: 
  Country: None (occurrence: None)
  Receive Date: 20080125
  Receipt Date: 20080114
  Transmission Date: 20080703
  Serious: Yes (Hospitalization)
  Sender: FDA-Public Use
  Company Number: 2007BI002362

PATIENT
  Age: 65 Year
  Sex: Female

DRUGS (1)
  1. AVONEX [Suspect]
     Indication: MULTIPLE SCLEROSIS
     Dates: start: 20020712

REACTIONS (1)
  - POST PROCEDURAL COMPLICATION [None]
